FAERS Safety Report 5487417-1 (Version None)
Quarter: 2007Q4

REPORT INFORMATION
  Report Type: 
  Country: None (occurrence: None)
  Receive Date: 20071016
  Receipt Date: 20071004
  Transmission Date: 20080405
  Serious: Yes (Hospitalization, Other)
  Sender: FDA-Public Use
  Company Number: US-PFIZER INC-2006149810

PATIENT
  Sex: Female
  Weight: 86.2 kg

DRUGS (6)
  1. CELEBREX [Suspect]
     Route: 048
  2. VIOXX [Suspect]
     Indication: CARPAL TUNNEL SYNDROME
     Route: 048
     Dates: start: 20020202, end: 20020506
  3. VIOXX [Suspect]
     Indication: PAIN
  4. FLEXERIL [Concomitant]
     Indication: CHEST PAIN
  5. ACETYLSALICYLIC ACID [Concomitant]
     Indication: PAIN
  6. MOTRIN [Concomitant]
     Indication: PAIN
     Dates: start: 20020101, end: 20040201

REACTIONS (2)
  - ACUTE CORONARY SYNDROME [None]
  - MYOCARDIAL INFARCTION [None]
